FAERS Safety Report 11203226 (Version 1)
Quarter: 2015Q2

REPORT INFORMATION
  Report Type: Spontaneous
  Country: US (occurrence: US)
  Receive Date: 20150619
  Receipt Date: 20150619
  Transmission Date: 20150821
  Serious: Yes (Hospitalization, Disabling, Other)
  Sender: FDA-Public Use
  Company Number: US-009507513-1506USA007663

PATIENT
  Sex: Female

DRUGS (10)
  1. CHOLECALCIFEROL [Concomitant]
     Active Substance: CHOLECALCIFEROL
     Dosage: 200-400 IU, UNK
     Dates: start: 1994
  2. CALCIUM (UNSPECIFIED) [Concomitant]
     Active Substance: CALCIUM
     Dosage: 333 MG, UNK
     Dates: start: 1994
  3. KONSYL ORIGINAL FORMULA PSYLLIUM FIBER [Concomitant]
     Active Substance: PSYLLIUM HUSK
     Dosage: UNK
     Dates: start: 1997
  4. CENTRUM SILVER [Concomitant]
     Active Substance: VITAMINS
     Dosage: UNK
     Dates: start: 2000
  5. ZINC (UNSPECIFIED) [Concomitant]
     Dosage: 5 MG, UNK
     Dates: start: 1994
  6. OSTEO-BI-FLEX (OLD FORMULA) [Concomitant]
     Dosage: UNK
     Dates: start: 1998
  7. MAGNESIUM (UNSPECIFIED) [Concomitant]
     Active Substance: MAGNESIUM
     Dosage: 333 MG, UNK
     Dates: start: 1994
  8. ALENDRONATE SODIUM. [Suspect]
     Active Substance: ALENDRONATE SODIUM
     Indication: BONE DENSITY DECREASED
     Dosage: 70 MG, UNK
     Route: 048
     Dates: start: 20080309, end: 20100410
  9. FOSAMAX [Suspect]
     Active Substance: ALENDRONATE SODIUM
     Indication: BONE DENSITY DECREASED
     Dosage: 70 MG, UNK
     Route: 048
     Dates: start: 20010720, end: 20071213
  10. VITAMIN A [Concomitant]
     Active Substance: VITAMIN A
     Dosage: 5000 IU, UNK
     Dates: start: 1997

REACTIONS (6)
  - Femur fracture [Unknown]
  - Femur fracture [Unknown]
  - Intramedullary rod insertion [Unknown]
  - Knee arthroplasty [Unknown]
  - Squamous cell carcinoma [Unknown]
  - Injury associated with device [Unknown]

NARRATIVE: CASE EVENT DATE: 200605
